FAERS Safety Report 5053589-6 (Version None)
Quarter: 2006Q3

REPORT INFORMATION
  Report Type: 
  Country: None (occurrence: None)
  Receive Date: 20060718
  Receipt Date: 20060630
  Transmission Date: 20061208
  Serious: Yes (Death, Other)
  Sender: FDA-Public Use
  Company Number: DE-AVENTIS-200611920DE

PATIENT
  Age: 88 Year
  Sex: Male
  Weight: 95 kg

DRUGS (13)
  1. CLEXANE [Suspect]
     Indication: BRONCHOSCOPY
     Dosage: DOSE: 0.8 - 0 - 0.8
     Route: 058
     Dates: start: 20060613, end: 20060617
  2. CLEXANE [Suspect]
     Indication: THROMBOSIS PROPHYLAXIS
     Dosage: DOSE: 0.8 - 0 - 0.8
     Route: 058
     Dates: start: 20060613, end: 20060617
  3. MARCUMAR [Concomitant]
  4. DECORTIN [Concomitant]
     Indication: CHRONIC OBSTRUCTIVE PULMONARY DISEASE
     Route: 048
     Dates: start: 20060604, end: 20060619
  5. ACC [Concomitant]
     Indication: CHRONIC OBSTRUCTIVE PULMONARY DISEASE
     Route: 048
     Dates: start: 20060604, end: 20060619
  6. SORTIS [Concomitant]
     Route: 048
  7. LASIX [Concomitant]
     Indication: CARDIAC FAILURE
     Route: 048
  8. ROCEPHIN [Concomitant]
     Dates: start: 20060601, end: 20060618
  9. GENTAMICIN [Concomitant]
     Dates: start: 20060601, end: 20060618
  10. KLACID [Concomitant]
     Dates: start: 20060601, end: 20060618
  11. SPIRIVA [Concomitant]
     Dosage: DOSE: 0-0-1
  12. SYMBICORT [Concomitant]
     Dosage: DOSE: 1-0-1
  13. SALMETEROL [Concomitant]
     Dosage: DOSE: 1-0-1
     Route: 048

REACTIONS (3)
  - RENAL FAILURE [None]
  - RETROPERITONEAL HAEMATOMA [None]
  - SHOCK HAEMORRHAGIC [None]
